FAERS Safety Report 8621026-8 (Version None)
Quarter: 2012Q3

REPORT INFORMATION
  Report Type: 
  Country: None (occurrence: None)
  Receive Date: 20120824
  Receipt Date: 20111216
  Transmission Date: 20120928
  Serious: Yes (Hospitalization)
  Sender: FDA-Public Use
  Company Number: US-009507513-1208USA006821

PATIENT

DRUGS (3)
  1. VICTRELIS [Suspect]
     Indication: HEPATITIS C
     Dosage: UNK
     Dates: start: 20111021
  2. PEGINTERFERON ALFA-2A [Suspect]
     Indication: HEPATITIS C
     Dosage: 180 MICROGRAM, QW
     Dates: start: 20111021
  3. REBETOL [Suspect]
     Indication: HEPATITIS C
     Dosage: 1200 MG, QD
     Dates: start: 20111021

REACTIONS (7)
  - RED BLOOD CELL COUNT DECREASED [None]
  - NAUSEA [None]
  - VOMITING [None]
  - DIZZINESS [None]
  - DYSPNOEA [None]
  - PALLOR [None]
  - WHITE BLOOD CELL COUNT DECREASED [None]
